FAERS Safety Report 4751904-1 (Version None)
Quarter: 2005Q3

REPORT INFORMATION
  Report Type: 
  Country: None (occurrence: None)
  Receive Date: 20050824
  Receipt Date: 20050819
  Transmission Date: 20060218
  Serious: Yes (Other)
  Sender: FDA-Public Use
  Company Number: US-MERCK-0508USA03299

PATIENT
  Age: 78 Year
  Sex: Female
  Weight: 61 kg

DRUGS (7)
  1. FOSAMAX [Suspect]
     Indication: OSTEOPENIA
     Route: 048
     Dates: end: 20050729
  2. FOSAMAX [Suspect]
     Indication: SPINAL COMPRESSION FRACTURE
     Route: 048
     Dates: end: 20050729
  3. PREDNISONE [Concomitant]
     Indication: LUNG DISORDER
     Route: 048
  4. AVAPRO [Concomitant]
     Route: 065
  5. CARDURA [Concomitant]
     Route: 065
  6. LASIX [Concomitant]
     Route: 065
  7. CALCIUM (UNSPECIFIED) [Concomitant]
     Route: 065

REACTIONS (2)
  - LOW TURNOVER OSTEOPATHY [None]
  - OSTEOPOROSIS [None]
